FAERS Safety Report 9170733 (Version 1)
Quarter: 2013Q1

REPORT INFORMATION
  Report Type: Spontaneous
  Country: US (occurrence: None)
  Receive Date: 20130312
  Receipt Date: 20130312
  Transmission Date: 20140127
  Serious: Yes (Other)
  Sender: FDA-Public Use
  Company Number: SYM-2013-01396

PATIENT
  Sex: Male

DRUGS (1)
  1. EFUDIX [Suspect]
     Indication: ACTINIC KERATOSIS

REACTIONS (3)
  - Nausea [None]
  - Dizziness [None]
  - Diarrhoea [None]
